FAERS Safety Report 22071962 (Version 1)
Quarter: 2023Q1

REPORT INFORMATION
  Report Type: Spontaneous
  Country: US (occurrence: US)
  Receive Date: 20230308
  Receipt Date: 20230308
  Transmission Date: 20230418
  Serious: No
  Sender: FDA-Public Use
  Company Number: US-SA-SAC20230306000138

PATIENT
  Age: 79 Year
  Sex: Male
  Weight: 195 kg

DRUGS (1)
  1. MULTAQ [Suspect]
     Active Substance: DRONEDARONE
     Indication: Atrial fibrillation
     Dosage: 400 MG, BID
     Route: 048
     Dates: start: 20230205, end: 20230217

REACTIONS (5)
  - Abdominal discomfort [Unknown]
  - Fluid retention [Unknown]
  - Weight decreased [Unknown]
  - Heart rate decreased [Unknown]
  - Diarrhoea [Unknown]

NARRATIVE: CASE EVENT DATE: 20230205
